FAERS Safety Report 4576674-1 (Version None)
Quarter: 2005Q1

REPORT INFORMATION
  Report Type: 
  Country: None (occurrence: None)
  Receive Date: 20050210
  Receipt Date: 20050131
  Transmission Date: 20050727
  Serious: Yes (Hospitalization)
  Sender: FDA-Public Use
  Company Number: GB-NOVOPROD-241959

PATIENT
  Age: 12 Year
  Sex: Female

DRUGS (3)
  1. NORDITROPIN SIMPLEXX [Suspect]
     Indication: PTERYGIUM
     Dosage: 1 MG, QD
     Dates: start: 20041025
  2. LACTULOSE [Concomitant]
  3. SENOKOT [Concomitant]

REACTIONS (1)
  - DIABETIC KETOACIDOSIS [None]
